FAERS Safety Report 11554319 (Version 1)
Quarter: 2015Q3

REPORT INFORMATION
  Report Type: Spontaneous
  Country: US (occurrence: US)
  Receive Date: 20150925
  Receipt Date: 20150925
  Transmission Date: 20151125
  Serious: Yes (Hospitalization, Other)
  Sender: FDA-Public Use
  Company Number: PHHY2015US113678

PATIENT
  Age: 34 Year
  Sex: Male

DRUGS (2)
  1. LEVOFLOXACIN. [Suspect]
     Active Substance: LEVOFLOXACIN
     Indication: PNEUMOTHORAX
     Route: 065
  2. IMIPENEM [Suspect]
     Active Substance: IMIPENEM
     Indication: PNEUMOTHORAX
     Route: 065

REACTIONS (4)
  - Acute kidney injury [Unknown]
  - Pathogen resistance [Unknown]
  - Acute respiratory distress syndrome [Unknown]
  - Septic shock [Unknown]
